FAERS Safety Report 7689762-8 (Version None)
Quarter: 2011Q3

REPORT INFORMATION
  Report Type: 
  Country: None (occurrence: None)
  Receive Date: 20110817
  Receipt Date: 20110809
  Transmission Date: 20111222
  Serious: Yes (Hospitalization)
  Sender: FDA-Public Use
  Company Number: US-US-EMD SERONO, INC.-7076396

PATIENT
  Sex: Female

DRUGS (3)
  1. REBIF [Suspect]
     Indication: MULTIPLE SCLEROSIS
     Dates: start: 20070117, end: 20110101
  2. CHANTIX [Concomitant]
     Dates: end: 20070101
  3. REBIF [Suspect]
     Route: 058
     Dates: start: 20110101, end: 20110401

REACTIONS (1)
  - GRAND MAL CONVULSION [None]
